FAERS Safety Report 24664966 (Version 1)
Quarter: 2024Q4

REPORT INFORMATION
  Report Type: Other
  Country: CN (occurrence: CN)
  Receive Date: 20241126
  Receipt Date: 20241126
  Transmission Date: 20250114
  Serious: Yes (Other)
  Sender: PARATEK PHARMACEUTICALS
  Company Number: CN-PARATEK PHARMACEUTICALS, INC.-2024PTK01062

PATIENT
  Age: 85 Year
  Sex: Male
  Weight: 70 kg

DRUGS (2)
  1. NUZYRA [Suspect]
     Active Substance: OMADACYCLINE
     Indication: Pneumonia
     Dosage: 0.2 G, 1X/DAY
     Route: 041
     Dates: start: 20241024, end: 20241024
  2. NUZYRA [Suspect]
     Active Substance: OMADACYCLINE
     Dosage: 0.1 G, 1X/DAY
     Route: 041
     Dates: start: 20241025, end: 20241025

REACTIONS (1)
  - Rash [Recovered/Resolved]

NARRATIVE: CASE EVENT DATE: 20241025
